FAERS Safety Report 5347238-7 (Version None)
Quarter: 2007Q2

REPORT INFORMATION
  Report Type: 
  Country: None (occurrence: None)
  Receive Date: 20070509
  Receipt Date: 20060606
  Transmission Date: 20071010
  Serious: Yes (Hospitalization)
  Sender: FDA-Public Use
  Company Number: 451034

PATIENT
  Sex: Male
  Weight: 64 kg

DRUGS (1)
  1. FUZEON [Suspect]
     Indication: DRUG USE FOR UNKNOWN INDICATION
     Dosage: 2 PER DAY INTRAMUSCULAR
     Route: 030

REACTIONS (1)
  - MAJOR DEPRESSION [None]
